FAERS Safety Report 9893609 (Version 5)
Quarter: 2015Q2

REPORT INFORMATION
  Report Type: Spontaneous
  Country: US (occurrence: US)
  Receive Date: 20140213
  Receipt Date: 20150521
  Transmission Date: 20150821
  Serious: Yes (Death, Life-Threatening, Hospitalization, Other)
  Sender: FDA-Public Use
  Company Number: US-MERCK-1402USA005833

PATIENT
  Sex: Male
  Weight: 81.63 kg

DRUGS (1)
  1. JANUVIA [Suspect]
     Active Substance: SITAGLIPTIN PHOSPHATE
     Indication: TYPE 2 DIABETES MELLITUS
     Dosage: 50 MG, QD
     Route: 048
     Dates: start: 20071214, end: 20100105

REACTIONS (31)
  - Pancreatic carcinoma metastatic [Unknown]
  - Bile duct stent insertion [Recovering/Resolving]
  - Radiotherapy [Unknown]
  - Bile duct stenosis [Unknown]
  - Aortic arteriosclerosis [Unknown]
  - Renal cyst [Unknown]
  - Interstitial lung disease [Unknown]
  - Inguinal hernia [Unknown]
  - Klebsiella infection [Unknown]
  - Pneumonia [Unknown]
  - Septic shock [Unknown]
  - Stent removal [Unknown]
  - Large intestine polyp [Unknown]
  - Arterial disorder [Unknown]
  - Decubitus ulcer [Unknown]
  - Hypertension [Unknown]
  - Anaemia [Unknown]
  - Arteriosclerosis coronary artery [Unknown]
  - Enterococcal infection [Unknown]
  - Aortic aneurysm [Unknown]
  - Ascites [Unknown]
  - Prostate cancer [Fatal]
  - Peritonitis bacterial [Unknown]
  - Stent placement [Unknown]
  - Hepatic lesion [Unknown]
  - Cyst [Unknown]
  - Rash generalised [Recovering/Resolving]
  - Cardiac arrest [Fatal]
  - Gastrooesophageal reflux disease [Unknown]
  - Anaemia [Unknown]
  - Drug intolerance [Recovering/Resolving]

NARRATIVE: CASE EVENT DATE: 2009
